FAERS Safety Report 16186040 (Version 1)
Quarter: 2019Q2

REPORT INFORMATION
  Report Type: Spontaneous
  Country: CN (occurrence: CN)
  Receive Date: 20190411
  Receipt Date: 20190411
  Transmission Date: 20190711
  Serious: Yes (Other)
  Sender: FDA-Public Use
  Company Number: CN-INCYTE CORPORATION-2019IN003638

PATIENT

DRUGS (2)
  1. JAKAVI [Suspect]
     Active Substance: RUXOLITINIB
     Indication: MYELOPROLIFERATIVE NEOPLASM
     Dosage: 6 DF, BID (3 DF AT A TIME)
     Route: 048
     Dates: start: 20180309
  2. JAKAVI [Suspect]
     Active Substance: RUXOLITINIB
     Dosage: 4 DF, BID (2 DF AT A TIME)
     Route: 048

REACTIONS (7)
  - Haemoglobin abnormal [Unknown]
  - White blood cell count abnormal [Unknown]
  - Anaemia [Unknown]
  - Platelet count abnormal [Unknown]
  - Incorrect product formulation administered [Unknown]
  - Pneumonia [Unknown]
  - Splenomegaly [Unknown]

NARRATIVE: CASE EVENT DATE: 201809
